FAERS Safety Report 9542423 (Version 1)
Quarter: 2013Q2

REPORT INFORMATION
  Report Type: Spontaneous
  Country: US (occurrence: None)
  Receive Date: 20130524
  Receipt Date: 20130524
  Transmission Date: 20140414
  Serious: Yes (Other)
  Sender: FDA-Public Use
  Company Number: PHEH2012US025477

PATIENT
  Age: 49 Year
  Sex: Male

DRUGS (1)
  1. GILENYA [Suspect]
     Indication: MULTIPLE SCLEROSIS
     Route: 048
     Dates: start: 20110103

REACTIONS (4)
  - White blood cell count decreased [None]
  - Concomitant disease aggravated [None]
  - Nephrolithiasis [None]
  - Inappropriate schedule of drug administration [None]
